FAERS Safety Report 20501753 (Version 3)
Quarter: 2022Q1

REPORT INFORMATION
  Report Type: Report from Study
  Country: US (occurrence: US)
  Receive Date: 20220222
  Receipt Date: 20220308
  Transmission Date: 20220423
  Serious: Yes (Hospitalization)
  Sender: FDA-Public Use
  Company Number: US-ALKERMES INC.-ALK-2022-000826

PATIENT
  Age: 61 Year
  Sex: Female

DRUGS (26)
  1. VIVITROL [Suspect]
     Active Substance: NALTREXONE
     Indication: Drug use disorder
     Dosage: DRUG NOT RECEIVED
     Route: 030
  2. BUPRENORPHINE [Suspect]
     Active Substance: BUPRENORPHINE
     Indication: Drug use disorder
     Dosage: 4 MILLIGRAM, ONE TIME DOSE
     Route: 048
     Dates: start: 20211229, end: 20211229
  3. BUPRENORPHINE [Suspect]
     Active Substance: BUPRENORPHINE
     Dosage: 4 MILLIGRAM, ONE TIME DOSE
     Route: 048
     Dates: start: 20211228, end: 20211228
  4. BUPRENORPHINE [Suspect]
     Active Substance: BUPRENORPHINE
     Dosage: 8 MILLIGRAM, ONE TIME DOSE
     Route: 048
     Dates: start: 20211227, end: 20211227
  5. BUPRENORPHINE [Suspect]
     Active Substance: BUPRENORPHINE
     Dosage: 8 MILLIGRAM, ONE TIME DOSE
     Route: 048
     Dates: start: 20211226, end: 20211226
  6. BUPRENORPHINE [Suspect]
     Active Substance: BUPRENORPHINE
     Dosage: 12 MILLIGRAM, ONE TIME DOSE
     Route: 048
     Dates: start: 20211225, end: 20211225
  7. BUPRENORPHINE [Suspect]
     Active Substance: BUPRENORPHINE
     Dosage: 8 MILLIGRAM, ONE TIME DOSE
     Route: 048
     Dates: start: 20211224, end: 20211224
  8. BUPRENORPHINE [Suspect]
     Active Substance: BUPRENORPHINE
     Dosage: 12 MILLIGRAM, ONE TIME DOSE
     Route: 048
     Dates: start: 20211223, end: 20211223
  9. BUPRENORPHINE [Suspect]
     Active Substance: BUPRENORPHINE
     Dosage: 4 MILLIGRAM, ONE TIME DOSE
     Route: 048
     Dates: start: 20211222, end: 20211222
  10. CLONIDINE [Concomitant]
     Active Substance: CLONIDINE
     Indication: Prophylaxis
     Dosage: 0.1 MILLIGRAM, ONE TIME DOSE
     Route: 048
     Dates: start: 20220102, end: 20220102
  11. CLONIDINE [Concomitant]
     Active Substance: CLONIDINE
     Dosage: 0.1 MILLIGRAM, ONE TIME DOSE
     Route: 048
     Dates: start: 20220101, end: 20220101
  12. CLONIDINE [Concomitant]
     Active Substance: CLONIDINE
     Dosage: 0.1 MILLIGRAM, ONE TIME DOSE
     Route: 048
     Dates: start: 20211231, end: 20211231
  13. CLONIDINE [Concomitant]
     Active Substance: CLONIDINE
     Dosage: 0.2 MILLIGRAM, ONE TIME DOSE
     Route: 048
     Dates: start: 20211230, end: 20211230
  14. CLONIDINE [Concomitant]
     Active Substance: CLONIDINE
     Dosage: 0.1 MILLIGRAM, ONE TIME DOSE
     Route: 048
     Dates: start: 20211226, end: 20211226
  15. CLONIDINE [Concomitant]
     Active Substance: CLONIDINE
     Dosage: 0.1 MILLIGRAM, ONE TIME DOSE
     Route: 048
     Dates: start: 20211224, end: 20211224
  16. CLONIDINE [Concomitant]
     Active Substance: CLONIDINE
     Dosage: 0.1 MILLIGRAM, ONE TIME DOSE
     Route: 048
     Dates: start: 20211222, end: 20211222
  17. CLONIDINE [Concomitant]
     Active Substance: CLONIDINE
     Dosage: 0.1 MILLIGRAM, ONE TIME DOSE
     Route: 048
     Dates: start: 20211221, end: 20211221
  18. FLEXERIL [Concomitant]
     Active Substance: CYCLOBENZAPRINE HYDROCHLORIDE
     Indication: Product used for unknown indication
     Dosage: UNK
     Route: 065
  19. THERAVIT ANTIOXIDANT [Concomitant]
     Indication: Product used for unknown indication
     Dosage: UNK
     Route: 065
  20. BENTYL [Concomitant]
     Active Substance: DICYCLOMINE HYDROCHLORIDE
     Indication: Product used for unknown indication
     Dosage: UNK
     Route: 065
  21. TYLENOL [Concomitant]
     Active Substance: ACETAMINOPHEN
     Indication: Product used for unknown indication
     Dosage: UNK
     Route: 065
  22. TRAZODONE [Concomitant]
     Active Substance: TRAZODONE HYDROCHLORIDE
     Indication: Product used for unknown indication
     Dosage: UNK (TREATMENT)
     Route: 065
     Dates: start: 20220206, end: 20220206
  23. TRAZODONE [Concomitant]
     Active Substance: TRAZODONE HYDROCHLORIDE
     Indication: Insomnia
     Dosage: UNK
     Route: 065
  24. LIDODERM [Concomitant]
     Active Substance: LIDOCAINE
     Indication: Product used for unknown indication
     Dosage: 5% UNK
     Route: 065
  25. MILK OF MAGNESIA [Concomitant]
     Active Substance: MAGNESIUM HYDROXIDE
     Indication: Product used for unknown indication
     Dosage: UNK
     Route: 065
  26. UNSPECIFIED INGREDIENT [Concomitant]
     Active Substance: UNSPECIFIED INGREDIENT
     Indication: Product used for unknown indication
     Dosage: UNK
     Route: 065

REACTIONS (1)
  - COVID-19 [Recovering/Resolving]

NARRATIVE: CASE EVENT DATE: 20220206
